FAERS Safety Report 8088241-6 (Version None)
Quarter: 2012Q1

REPORT INFORMATION
  Report Type: 
  Country: None (occurrence: None)
  Receive Date: 20120131
  Receipt Date: 20120120
  Transmission Date: 20120608
  Serious: No
  Sender: FDA-Public Use
  Company Number: US-BIOGENIDEC-2012BI002453

PATIENT
  Age: 52 Year
  Sex: Female

DRUGS (1)
  1. AVONEX [Suspect]
     Indication: MULTIPLE SCLEROSIS
     Route: 030
     Dates: start: 20020323

REACTIONS (8)
  - DYSPHAGIA [None]
  - TOOTH FRACTURE [None]
  - HYPOAESTHESIA [None]
  - BALANCE DISORDER [None]
  - DEVICE FAILURE [None]
  - SUBMANDIBULAR MASS [None]
  - TENDERNESS [None]
  - FEELING HOT [None]
